FAERS Safety Report 4934267-8 (Version None)
Quarter: 2006Q1

REPORT INFORMATION
  Report Type: 
  Country: None (occurrence: None)
  Receive Date: 20060307
  Receipt Date: 20060227
  Transmission Date: 20060701
  Serious: Yes (Disabling, Other)
  Sender: FDA-Public Use
  Company Number: US-JNJFOC-20051204188

PATIENT
  Sex: Male
  Weight: 88.45 kg

DRUGS (9)
  1. REMICADE [Suspect]
     Route: 042
  2. REMICADE [Suspect]
     Route: 042
  3. REMICADE [Suspect]
     Route: 042
  4. REMICADE [Suspect]
     Indication: CROHN'S DISEASE
     Route: 042
  5. ASACOL [Concomitant]
  6. AZATHIOPRINE [Concomitant]
  7. PREDNISONE [Concomitant]
  8. ATENOLOL [Concomitant]
  9. TRICOR [Concomitant]

REACTIONS (1)
  - MONONEUROPATHY MULTIPLEX [None]
